FAERS Safety Report 8072887-5 (Version None)
Quarter: 2012Q1

REPORT INFORMATION
  Report Type: 
  Country: None (occurrence: None)
  Receive Date: 20120120
  Receipt Date: 20120109
  Transmission Date: 20120608
  Serious: Yes (Death)
  Sender: FDA-Public Use
  Company Number: 2012MA000711

PATIENT
  Age: 43 Year
  Sex: Female

DRUGS (7)
  1. TOPIRAMATE [Concomitant]
  2. FEVERALL [Suspect]
  3. DILANTIN [Concomitant]
  4. QUETIAPINE [Suspect]
  5. BUTALBITAL [Suspect]
  6. CHLORPHENIRAMINE MALEATE [Concomitant]
  7. OLANZAPINE [Concomitant]

REACTIONS (2)
  - UNRESPONSIVE TO STIMULI [None]
  - TOXICITY TO VARIOUS AGENTS [None]
